FAERS Safety Report 9749638 (Version 3)
Quarter: 2014Q1

REPORT INFORMATION
  Report Type: Report from Study
  Country: NL (occurrence: NL)
  Receive Date: 20131212
  Receipt Date: 20140121
  Transmission Date: 20141002
  Serious: Yes (Death)
  Sender: FDA-Public Use
  Company Number: NL-BAXTER-2013BAX048899

PATIENT
  Sex: Female

DRUGS (6)
  1. GAMMAGARD S/D 10, POEDER VOOR INFUSIEVLOEISTOF [Suspect]
     Indication: MULTIPLE SCLEROSIS
     Dosage: 200 (UNITS NOT SPECIFIED) OF 10G/VIAL
     Route: 042
     Dates: start: 20111007
  2. GAMMAGARD S/D 10, POEDER VOOR INFUSIEVLOEISTOF [Suspect]
     Indication: OFF LABEL USE
     Dosage: 200 UNITS NOT SPECIFIED
     Route: 042
     Dates: start: 20131031
  3. GAMMAGARD S/D 10, POEDER VOOR INFUSIEVLOEISTOF [Suspect]
     Dosage: 200 UNITS NOT SPECIFIED
     Route: 042
     Dates: end: 20131127
  4. GAMMAGARD S/D 5, POEDER VOOR INFUSIEVLOEISTOF [Suspect]
     Indication: MULTIPLE SCLEROSIS
     Dosage: 200 UNITS NOT SPECIFIED
     Route: 042
     Dates: start: 20111007
  5. GAMMAGARD S/D 5, POEDER VOOR INFUSIEVLOEISTOF [Suspect]
     Indication: OFF LABEL USE
     Dosage: 200 UNITS NOT SPECIFIED
     Route: 042
     Dates: start: 20131031
  6. GAMMAGARD S/D 5, POEDER VOOR INFUSIEVLOEISTOF [Suspect]
     Dosage: 200 UNITS NOT SPECIFIED
     Route: 042
     Dates: end: 20131127

REACTIONS (1)
  - Death [Fatal]
